FAERS Safety Report 20003845 (Version 1)
Quarter: 2021Q4

REPORT INFORMATION
  Report Type: Spontaneous
  Country: IT (occurrence: IT)
  Receive Date: 20211027
  Receipt Date: 20211027
  Transmission Date: 20220303
  Serious: Yes (Hospitalization)
  Sender: FDA-Public Use
  Company Number: IT-PFIZER INC-202101011467

PATIENT
  Age: 50 Year
  Sex: Female

DRUGS (4)
  1. XANAX [Suspect]
     Active Substance: ALPRAZOLAM
     Dosage: 5 DROPS (IN THE EVENING AND AS NEEDED DURING THE DAY)
  2. XANAX [Suspect]
     Active Substance: ALPRAZOLAM
     Dosage: 5 DROPS (IN THE EVENING AND AS NEEDED DURING THE DAY)
  3. XANAX [Suspect]
     Active Substance: ALPRAZOLAM
     Dosage: 5 DROPS (IN THE EVENING AND AS NEEDED DURING THE DAY)
  4. XANAX [Suspect]
     Active Substance: ALPRAZOLAM
     Dosage: 5 DROPS (IN THE EVENING AND AS NEEDED DURING THE DAY)

REACTIONS (5)
  - Neurovascular conflict [Unknown]
  - Somnolence [Recovered/Resolved]
  - Hypertonia [Recovered/Resolved]
  - Therapeutic product effect decreased [Unknown]
  - Product taste abnormal [Unknown]
